FAERS Safety Report 4546932-5 (Version None)
Quarter: 2005Q1

REPORT INFORMATION
  Report Type: 
  Country: None (occurrence: None)
  Receive Date: 20050106
  Receipt Date: 20041125
  Transmission Date: 20050727
  Serious: Yes (Disabling)
  Sender: FDA-Public Use
  Company Number: FI-MERCK-0412FIN00002

PATIENT
  Age: 51 Year
  Sex: Female

DRUGS (2)
  1. VIOXX [Suspect]
     Indication: ARTHRALGIA
     Route: 048
     Dates: start: 20011002, end: 20040511
  2. IBUPROFEN [Concomitant]
     Indication: ARTHRALGIA
     Route: 048

REACTIONS (3)
  - AMNESIA [None]
  - BLOOD PRESSURE INCREASED [None]
  - CEREBROVASCULAR ACCIDENT [None]
